FAERS Safety Report 8218781-8 (Version None)
Quarter: 2012Q1

REPORT INFORMATION
  Report Type: 
  Country: None (occurrence: None)
  Receive Date: 20120319
  Receipt Date: 20120313
  Transmission Date: 20120608
  Serious: Yes (Hospitalization, Other)
  Sender: FDA-Public Use
  Company Number: PHHY2011CA02254

PATIENT
  Sex: Female

DRUGS (24)
  1. ASPIRIN [Concomitant]
     Dosage: 81 MG, UNK
  2. CRESTOR [Concomitant]
     Indication: BLOOD CHOLESTEROL
     Dosage: 10 MG, UNK
  3. DURAGESIC-100 [Concomitant]
     Indication: PAIN
     Dosage: 100 UG, 1X 72
  4. VITAMIN D [Concomitant]
     Dosage: 3400 IU, UNK
  5. ZOLEDRONOC ACID [Suspect]
     Dosage: 5 MG, YEARLY
     Route: 042
     Dates: start: 20100101
  6. ZOLEDRONOC ACID [Suspect]
     Dosage: 5 MG, YEARLY
     Route: 042
     Dates: start: 20110126
  7. ATROVENT [Concomitant]
     Dosage: 2 PUFFS 3 TIMES A DAY
  8. GABAPENTIN [Concomitant]
     Indication: PAIN
     Dosage: 2 DF, BID
  9. ALBUTEROL [Concomitant]
     Dosage: 1 PUFF DAILY
  10. ZOLEDRONOC ACID [Suspect]
     Indication: OSTEOPOROSIS
     Dosage: 5 MG, YEARLY
     Route: 042
     Dates: start: 20080101
  11. SOFLAX [Concomitant]
  12. POTASSIUM [Concomitant]
     Indication: MINERAL SUPPLEMENTATION
     Dosage: 2 DF, BID
  13. VITAMIN B-12 [Concomitant]
     Dosage: 1 DF, UNK
  14. MULTI-VITAMINS [Concomitant]
  15. MIACALCIN [Concomitant]
     Indication: OSTEOPOROSIS
     Dosage: 1 SPRAY DAILY
  16. PROPOLIS [Concomitant]
     Dosage: 3X 50 DROP DAILY
  17. FLOVENT [Concomitant]
     Dosage: 2 PUFFS TWICE DAILY
  18. LORAZEPAM [Concomitant]
     Dosage: 1 DF, QD AT BEDTIME
  19. ZOLEDRONOC ACID [Suspect]
     Dosage: 5 MG, YEARLY
     Route: 042
     Dates: start: 20091208
  20. DURAGESIC-100 [Concomitant]
     Dosage: 50 UG, 1X 72
  21. PANTOPRAZOLE SODIUM [Concomitant]
  22. SYNTHROID [Concomitant]
     Indication: THYROID DISORDER
  23. CALCIUM CARBONATE [Concomitant]
     Dosage: 1800 MG, UNK
  24. LENOLTECH NO 3 [Concomitant]
     Dosage: 1-2 TAB EVERY 4 HRS

REACTIONS (4)
  - OSTEOPOROSIS [None]
  - FIBROCYSTIC BREAST DISEASE [None]
  - BALANCE DISORDER [None]
  - FALL [None]
